FAERS Safety Report 7429141-1 (Version None)
Quarter: 2011Q2

REPORT INFORMATION
  Report Type: 
  Country: None (occurrence: None)
  Receive Date: 20110421
  Receipt Date: 20110414
  Transmission Date: 20111010
  Serious: Yes (Other)
  Sender: FDA-Public Use
  Company Number: DE-ROCHE-772351

PATIENT
  Sex: Female

DRUGS (1)
  1. BONIVA [Suspect]
     Dosage: LAST ADMINISTRATION PRIOR TO THE EVENT: JUL 2010
     Route: 042

REACTIONS (1)
  - APHONIA [None]
